FAERS Safety Report 19886962 (Version 1)
Quarter: 2021Q3

REPORT INFORMATION
  Report Type: Spontaneous
  Country: JP (occurrence: JP)
  Receive Date: 20210928
  Receipt Date: 20210928
  Transmission Date: 20211014
  Serious: Yes (Other)
  Sender: FDA-Public Use
  Company Number: JP-MTPC-MTPC2021-0023237

PATIENT
  Sex: Female

DRUGS (1)
  1. RADICUT INJ. 30MG [Suspect]
     Active Substance: EDARAVONE
     Indication: CEREBRAL INFARCTION
     Route: 041

REACTIONS (1)
  - Platelet count decreased [Unknown]
